FAERS Safety Report 13444068 (Version 2)
Quarter: 2017Q4

REPORT INFORMATION
  Report Type: Spontaneous
  Country: US (occurrence: US)
  Receive Date: 20170414
  Receipt Date: 20171016
  Transmission Date: 20180320
  Serious: No
  Sender: FDA-Public Use
  Company Number: US-NOVOPROD-535240

PATIENT
  Age: 64 Year
  Sex: Female

DRUGS (2)
  1. NOVOLOG [Suspect]
     Active Substance: INSULIN ASPART
     Indication: DIABETES MELLITUS
     Dosage: 17 UNITS AM, 16 UNITS PM, 20 UNITS PM
     Route: 058
     Dates: start: 2013
  2. TRESIBA [Suspect]
     Active Substance: INSULIN DEGLUDEC
     Indication: DIABETES MELLITUS
     Dosage: 2 U, QD
     Route: 058
     Dates: start: 20170125

REACTIONS (1)
  - Blood glucose fluctuation [Not Recovered/Not Resolved]
